FAERS Safety Report 10386503 (Version 2)
Quarter: 2014Q3

REPORT INFORMATION
  Report Type: Spontaneous
  Country: US (occurrence: US)
  Receive Date: 20140815
  Receipt Date: 20140918
  Transmission Date: 20150326
  Serious: No
  Sender: FDA-Public Use
  Company Number: US-SHIRE-US201404993

PATIENT
  Sex: Female
  Weight: 76.64 kg

DRUGS (7)
  1. ABILIFY [Concomitant]
     Active Substance: ARIPIPRAZOLE
     Indication: DEPRESSION
     Dosage: 2.5 MG, 1X/DAY:QD
     Route: 048
     Dates: start: 2004
  2. VYVANSE [Suspect]
     Active Substance: LISDEXAMFETAMINE DIMESYLATE
     Indication: ATTENTION DEFICIT/HYPERACTIVITY DISORDER
     Dosage: 30 MG, 1X/DAY:QD
     Route: 048
     Dates: start: 201404
  3. ALBUTEROL                          /00139501/ [Concomitant]
     Active Substance: ALBUTEROL
     Indication: ASTHMA EXERCISE INDUCED
     Dosage: UNK, AS REQ^D
     Route: 065
  4. ENBREL [Concomitant]
     Active Substance: ETANERCEPT
     Indication: PSORIATIC ARTHROPATHY
     Dosage: 25 MG, OTHER (TWICE/WEEK, INJECTABLE)
     Route: 065
     Dates: start: 2007
  5. NEXIUM [Concomitant]
     Active Substance: ESOMEPRAZOLE MAGNESIUM
     Indication: GASTROOESOPHAGEAL REFLUX DISEASE
     Dosage: 20 MG, 1X/DAY:QD
     Route: 048
     Dates: start: 2005
  6. PROVIGIL [Concomitant]
     Active Substance: MODAFINIL
     Indication: POOR QUALITY SLEEP
     Dosage: 200 MG, 1X/DAY:QD
     Route: 048
     Dates: start: 2004
  7. LIOTHYRONINE [Concomitant]
     Active Substance: LIOTHYRONINE
     Indication: HYPOTHYROIDISM
     Dosage: 10 MG, 1X/DAY:QD
     Route: 048
     Dates: start: 2007

REACTIONS (6)
  - Anxiety [Unknown]
  - Emotional distress [Not Recovered/Not Resolved]
  - Product quality issue [Unknown]
  - Circadian rhythm sleep disorder [Unknown]
  - Pain [Unknown]
  - Adverse drug reaction [Unknown]

NARRATIVE: CASE EVENT DATE: 2014
